FAERS Safety Report 10143884 (Version 1)
Quarter: 2014Q2

REPORT INFORMATION
  Report Type: Spontaneous
  Country: BR (occurrence: BR)
  Receive Date: 20140430
  Receipt Date: 20140430
  Transmission Date: 20141212
  Serious: Yes (Other)
  Sender: FDA-Public Use
  Company Number: BR-ASTELLAS-2014US004354

PATIENT
  Age: 77 Year
  Sex: Female

DRUGS (14)
  1. TARCEVA [Suspect]
     Indication: BRONCHIAL CARCINOMA
     Route: 065
     Dates: start: 20130914
  2. TARCEVA [Suspect]
     Indication: LUNG NEOPLASM MALIGNANT
     Route: 065
     Dates: start: 20131014
  3. TARCEVA [Suspect]
     Route: 065
     Dates: start: 20131209
  4. TARCEVA [Suspect]
     Route: 065
     Dates: start: 20140110
  5. TARCEVA [Suspect]
     Route: 065
     Dates: start: 20140211
  6. TARCEVA [Suspect]
     Route: 065
     Dates: start: 20140311
  7. TARCEVA [Suspect]
     Route: 065
     Dates: start: 20140410
  8. PHENYTOIN [Concomitant]
     Indication: PRODUCT USED FOR UNKNOWN INDICATION
     Route: 048
  9. DEXAMETASON                        /00016001/ [Concomitant]
     Indication: PRODUCT USED FOR UNKNOWN INDICATION
     Route: 048
  10. INSULIN NPH                        /01223208/ [Concomitant]
     Indication: PRODUCT USED FOR UNKNOWN INDICATION
     Dosage: UNK UNK, UNKNOWN FREQ.
     Route: 058
  11. DIPYRONE [Concomitant]
     Indication: PRODUCT USED FOR UNKNOWN INDICATION
     Dosage: UNK UNK, UNKNOWN FREQ.
     Route: 048
  12. LACTULOSE [Concomitant]
     Indication: PRODUCT USED FOR UNKNOWN INDICATION
     Dosage: UNK UNK, UNKNOWN FREQ.
     Route: 048
  13. OMEPRAZOLE [Concomitant]
     Indication: PRODUCT USED FOR UNKNOWN INDICATION
     Route: 048
  14. METFORMIN HYDROCHLORIDE [Concomitant]
     Indication: PRODUCT USED FOR UNKNOWN INDICATION
     Route: 048

REACTIONS (2)
  - Oedema peripheral [Recovered/Resolved]
  - Acne [Recovered/Resolved]
